FAERS Safety Report 6941740-X (Version None)
Quarter: 2010Q3

REPORT INFORMATION
  Report Type: 
  Country: None (occurrence: None)
  Receive Date: 20100826
  Receipt Date: 20100819
  Transmission Date: 20110219
  Serious: Yes (Hospitalization)
  Sender: FDA-Public Use
  Company Number: US-BIOGENIDEC-2010BI024874

PATIENT
  Age: 51 Year
  Sex: Female

DRUGS (15)
  1. AVONEX [Suspect]
     Indication: MULTIPLE SCLEROSIS
     Route: 030
     Dates: start: 20080808, end: 20080808
  2. AVONEX [Suspect]
     Route: 030
     Dates: start: 20090619, end: 20100601
  3. CLONAZEPAM [Concomitant]
  4. EFFEXOR [Concomitant]
  5. OXYCODONE HCL AND ACETAMINOPHEN [Concomitant]
  6. FIORICET [Concomitant]
  7. LAMICTAL [Concomitant]
  8. LIDODERM [Concomitant]
  9. NEXIUM [Concomitant]
  10. OXYBUTYNIN [Concomitant]
  11. OXYCONTIN [Concomitant]
  12. PREMARIN [Concomitant]
  13. SENOKOT [Concomitant]
  14. SINGULAIR [Concomitant]
  15. SOMA [Concomitant]

REACTIONS (2)
  - LIVER DISORDER [None]
  - PANCREATITIS [None]
